FAERS Safety Report 7964074-3 (Version None)
Quarter: 2011Q4

REPORT INFORMATION
  Report Type: 
  Country: None (occurrence: None)
  Receive Date: 20111208
  Receipt Date: 20111201
  Transmission Date: 20120403
  Serious: Yes (Hospitalization)
  Sender: FDA-Public Use
  Company Number: DE-UCBSA-044213

PATIENT
  Age: 33 Year
  Sex: Female
  Weight: 80 kg

DRUGS (8)
  1. CERTOLIZUMAB PEGOL [Suspect]
     Indication: RHEUMATOID ARTHRITIS
     Dosage: NO. OF DOSES RECEIVED: 14
     Route: 058
     Dates: start: 20110107
  2. PREDNISONE [Concomitant]
     Route: 048
     Dates: start: 20110701
  3. CALCIGEN D [Concomitant]
     Dosage: 1-0-1
  4. PREDNISONE [Concomitant]
     Indication: RHEUMATOID ARTHRITIS
     Route: 048
     Dates: start: 20101208, end: 20110701
  5. PANTOPRAZOLE SODIUM [Concomitant]
     Indication: PROPHYLAXIS AGAINST GASTROINTESTINAL ULCER
     Route: 048
     Dates: start: 20100808
  6. ARAVA [Concomitant]
     Indication: RHEUMATOID ARTHRITIS
     Dosage: 1-0-0
     Route: 048
     Dates: start: 20100401
  7. PANTOPRAZOLE SODIUM [Concomitant]
     Dosage: 40; 1-0-1
  8. IBUPROFEN [Concomitant]
     Indication: RHEUMATOID ARTHRITIS
     Route: 048

REACTIONS (1)
  - MELAENA [None]
